FAERS Safety Report 8581165 (Version 9)
Quarter: 2013Q1

REPORT INFORMATION
  Report Type: Spontaneous
  Country: US (occurrence: US)
  Receive Date: 20120525
  Receipt Date: 20130122
  Transmission Date: 20140127
  Serious: Yes (Hospitalization, Disabling, Other)
  Sender: FDA-Public Use
  Company Number: US-009507513-1205USA02889

PATIENT
  Sex: 0

DRUGS (7)
  1. FOSAMAX [Suspect]
     Indication: OSTEOPOROSIS
     Dosage: 70 MG, QW
     Route: 048
     Dates: start: 1997, end: 2010
  2. FOSAMAX [Suspect]
     Dosage: 70MG, QW
     Route: 048
     Dates: start: 20010705
  3. FOSAMAX PLUS D [Suspect]
     Indication: OSTEOPOROSIS
     Dosage: 70 MG, QW
     Route: 048
     Dates: end: 2010
  4. CALCIUM (UNSPECIFIED) [Concomitant]
     Dosage: UNK, BID
     Dates: start: 1997
  5. FLUTICASONE [Concomitant]
     Indication: HYPERSENSITIVITY
     Dosage: UNK
     Dates: start: 2009, end: 2011
  6. PROMETHAZINE [Concomitant]
     Indication: HYPERSENSITIVITY
     Dosage: UNK
     Dates: start: 2008, end: 2008
  7. CLARITIN REDITABS [Concomitant]
     Indication: HYPERSENSITIVITY
     Dosage: UNK
     Dates: start: 2009, end: 2009

REACTIONS (71)
  - Restless legs syndrome [Unknown]
  - Oedema [Unknown]
  - Vitamin D deficiency [Unknown]
  - Paranoia [Unknown]
  - Mental status changes [Unknown]
  - Diverticulum [Unknown]
  - Vitamin B12 deficiency [Unknown]
  - Anaemia [Unknown]
  - Essential hypertension [Unknown]
  - Foot fracture [Unknown]
  - Foot operation [Unknown]
  - Dyspnoea [Unknown]
  - Varicose vein [Unknown]
  - Weight increased [Unknown]
  - Obesity [Unknown]
  - Intertrigo [Recovering/Resolving]
  - Tinea pedis [Unknown]
  - Onychomycosis [Unknown]
  - Stress [Unknown]
  - Sinus headache [Unknown]
  - Rheumatoid arthritis [Unknown]
  - Adverse event [Unknown]
  - Glucose tolerance impaired [Unknown]
  - Blood alkaline phosphatase increased [Unknown]
  - Inappropriate schedule of drug administration [Unknown]
  - Affective disorder [Unknown]
  - Renal disorder [Unknown]
  - Haemorrhoidal haemorrhage [Unknown]
  - Lumbar radiculopathy [Unknown]
  - Compression fracture [Unknown]
  - Fractured sacrum [Not Recovered/Not Resolved]
  - Fall [Unknown]
  - Radius fracture [Unknown]
  - Fall [Unknown]
  - Back injury [Unknown]
  - Pain [Not Recovered/Not Resolved]
  - Lumbar spinal stenosis [Unknown]
  - Neuropathy peripheral [Unknown]
  - Cough [Unknown]
  - Back pain [Unknown]
  - Constipation [Unknown]
  - Musculoskeletal pain [Unknown]
  - Oedema peripheral [Recovering/Resolving]
  - Femur fracture [Recovered/Resolved]
  - Osteoporosis [Not Recovered/Not Resolved]
  - Stress fracture [Not Recovered/Not Resolved]
  - Spinal nerve stimulator implantation [Unknown]
  - Femur fracture [Not Recovered/Not Resolved]
  - Low turnover osteopathy [Not Recovered/Not Resolved]
  - Medical device removal [Unknown]
  - Haemoglobin decreased [Recovering/Resolving]
  - Hip arthroplasty [Recovering/Resolving]
  - Open reduction of fracture [Recovering/Resolving]
  - Hypotension [Unknown]
  - Hysterectomy [Unknown]
  - Spinal compression fracture [Unknown]
  - Impaired healing [Unknown]
  - Depression [Unknown]
  - Eyelid ptosis [Unknown]
  - Anxiety [Unknown]
  - Foot fracture [Unknown]
  - Foot fracture [Unknown]
  - Calcium deficiency [Unknown]
  - Kidney infection [Unknown]
  - Intervertebral disc disorder [Not Recovered/Not Resolved]
  - Kyphoscoliosis [Not Recovered/Not Resolved]
  - Device failure [Unknown]
  - Cellulitis [Recovering/Resolving]
  - Facet joint syndrome [Unknown]
  - Hypothyroidism [Unknown]
  - Endometriosis [Unknown]
